FAERS Safety Report 9670236 (Version 1)
Quarter: 2013Q4

REPORT INFORMATION
  Report Type: Spontaneous
  Country: CA (occurrence: CA)
  Receive Date: 20131105
  Receipt Date: 20131105
  Transmission Date: 20140711
  Serious: Yes (Life-Threatening)
  Sender: FDA-Public Use
  Company Number: CHPA2013CA016689

PATIENT
  Sex: Female

DRUGS (3)
  1. MAALOX UNKNOWN [Suspect]
     Indication: DYSPEPSIA
     Dosage: UNK, UNK
     Route: 048
  2. MAALOX UNKNOWN [Suspect]
     Indication: ABDOMINAL PAIN UPPER
  3. MAALOX UNKNOWN [Suspect]
     Indication: OFF LABEL USE

REACTIONS (2)
  - Feeling abnormal [Unknown]
  - Therapeutic response unexpected [Unknown]
